FAERS Safety Report 12964445 (Version 1)
Quarter: 2016Q4

REPORT INFORMATION
  Report Type: Spontaneous
  Country: US (occurrence: US)
  Receive Date: 20161122
  Receipt Date: 20161122
  Transmission Date: 20170207
  Serious: Yes (Hospitalization, Other)
  Sender: FDA-Public Use
  Company Number: US-PFIZER INC-2016112036

PATIENT
  Age: 54 Year
  Sex: Female
  Weight: 58.96 kg

DRUGS (11)
  1. RAPAMUNE [Suspect]
     Active Substance: SIROLIMUS
     Dosage: 5MG, 2MG, 3MG, 4MG, AND 6MG IN THE PAST
  2. DAPSONE. [Concomitant]
     Active Substance: DAPSONE
     Indication: ANTIBIOTIC THERAPY
     Dosage: 1 DF, WEEKLY
     Route: 048
  3. MYFORTIC [Concomitant]
     Active Substance: MYCOPHENOLATE SODIUM
     Indication: PROPHYLAXIS AGAINST TRANSPLANT REJECTION
     Dosage: UNK UNK, 2X/DAY [360 TWO TABLETS]
     Route: 048
  4. LIPITOR [Concomitant]
     Active Substance: ATORVASTATIN CALCIUM
     Indication: BLOOD CHOLESTEROL INCREASED
     Dosage: 1 DF, DAILY
     Route: 048
  5. PREDNISONE. [Concomitant]
     Active Substance: PREDNISONE
     Indication: PROPHYLAXIS AGAINST TRANSPLANT REJECTION
     Dosage: 5 MG, DAILY
     Route: 048
  6. CLONIDINE. [Concomitant]
     Active Substance: CLONIDINE
     Indication: HYPERTENSION
     Dosage: 1 DF, 3X/DAY
     Route: 048
  7. HYDRALAZINE [Concomitant]
     Active Substance: HYDRALAZINE HYDROCHLORIDE
     Indication: HYPERTENSION
     Dosage: 1 DF, 3X/DAY
     Route: 048
  8. RAPAMUNE [Suspect]
     Active Substance: SIROLIMUS
     Indication: PROPHYLAXIS AGAINST TRANSPLANT REJECTION
     Dosage: 3 MG, DAILY (1MG THREE TABLETS)
     Route: 048
     Dates: start: 2000
  9. AZITHROMYCIN ANHYDROUS. [Concomitant]
     Active Substance: AZITHROMYCIN ANHYDROUS
     Indication: PROPHYLAXIS AGAINST TRANSPLANT REJECTION
     Dosage: 1 DF, UNK (ONE TABLET BY MOUTH THREE TIMES WEEKLY)
     Route: 048
  10. RAPAMUNE [Suspect]
     Active Substance: SIROLIMUS
     Dosage: 5 DF, DAILY
  11. NIACIN. [Concomitant]
     Active Substance: NIACIN
     Indication: BLOOD CHOLESTEROL INCREASED
     Dosage: 500 MG, DAILY
     Route: 048

REACTIONS (6)
  - Anaemia [Unknown]
  - Condition aggravated [Unknown]
  - Drug level decreased [Unknown]
  - Intercepted drug prescribing error [Unknown]
  - Product use issue [Unknown]
  - Pneumonia [Not Recovered/Not Resolved]

NARRATIVE: CASE EVENT DATE: 201611
